FAERS Safety Report 16418218 (Version 1)
Quarter: 2019Q2

REPORT INFORMATION
  Report Type: Spontaneous
  Country: DE (occurrence: DE)
  Receive Date: 20190612
  Receipt Date: 20190612
  Transmission Date: 20190711
  Serious: Yes (Hospitalization)
  Sender: FDA-Public Use
  Company Number: DE-JNJFOC-20190612444

PATIENT
  Age: 5 Year
  Sex: Male
  Weight: 23 kg

DRUGS (3)
  1. CEFPODOXIME [Suspect]
     Active Substance: CEFPODOXIME
     Indication: PYREXIA
     Route: 048
     Dates: start: 201902
  2. IBUPROFEN. [Suspect]
     Active Substance: IBUPROFEN
     Indication: PRODUCT USED FOR UNKNOWN INDICATION
     Route: 048
  3. IBUPROFEN. [Suspect]
     Active Substance: IBUPROFEN
     Route: 048

REACTIONS (1)
  - Urticaria [Recovered/Resolved]

NARRATIVE: CASE EVENT DATE: 20190216
